FAERS Safety Report 7683748-5 (Version None)
Quarter: 2011Q3

REPORT INFORMATION
  Report Type: 
  Country: None (occurrence: None)
  Receive Date: 20110815
  Receipt Date: 20110808
  Transmission Date: 20111222
  Serious: Yes (Hospitalization, Other)
  Sender: FDA-Public Use
  Company Number: US-CEPHALON-2010005940

PATIENT
  Sex: Female

DRUGS (11)
  1. LANSOPRAZOLE [Concomitant]
  2. PHOSPHA [Concomitant]
  3. KEPPRA [Concomitant]
     Indication: CONVULSION
  4. LEVOTHYROXINE SODIUM [Concomitant]
  5. NEURONTIN [Concomitant]
  6. CALCIUM CARBONATE [Concomitant]
  7. PULMICORT [Concomitant]
  8. PROVIGIL [Suspect]
     Indication: SEDATION
     Route: 048
     Dates: start: 20061012
  9. TRILEPTAL [Concomitant]
     Indication: CONVULSION
  10. TOPAMAX [Concomitant]
     Indication: CONVULSION
  11. METOCLOPRAMIDE [Concomitant]

REACTIONS (8)
  - VOMITING [None]
  - DRUG PRESCRIBING ERROR [None]
  - DRUG INEFFECTIVE FOR UNAPPROVED INDICATION [None]
  - DEPRESSED LEVEL OF CONSCIOUSNESS [None]
  - SOMNOLENCE [None]
  - DIARRHOEA [None]
  - URINE ODOUR ABNORMAL [None]
  - MENTAL STATUS CHANGES [None]
